FAERS Safety Report 21351528 (Version 1)
Quarter: 2022Q3

REPORT INFORMATION
  Report Type: Spontaneous
  Country: FR (occurrence: FR)
  Receive Date: 20220919
  Receipt Date: 20220919
  Transmission Date: 20221027
  Serious: Yes (Life-Threatening, Hospitalization)
  Sender: FDA-Public Use
  Company Number: None

PATIENT
  Age: 68 Year
  Sex: Male

DRUGS (6)
  1. OLANZAPINE [Suspect]
     Active Substance: OLANZAPINE
     Indication: Product used for unknown indication
     Dosage: 140 MG, SINGLE (14 TABLETS OF 10MG)
     Route: 048
     Dates: start: 20220816, end: 20220816
  2. ALPRAZOLAM [Suspect]
     Active Substance: ALPRAZOLAM
     Indication: Product used for unknown indication
     Dosage: 4.75 MG, SINGLE (19 TABLETS OF 0.25MG)
     Route: 048
     Dates: start: 20220816, end: 20220816
  3. PROTHIADEN [Suspect]
     Active Substance: DOTHIEPIN HYDROCHLORIDE
     Indication: Product used for unknown indication
     Dosage: 2250 MG, SINGLE (30 TABLETS OF 75MG)
     Route: 048
     Dates: start: 20220816, end: 20220816
  4. ZOPICLONE [Suspect]
     Active Substance: ZOPICLONE
     Indication: Product used for unknown indication
     Dosage: 97.5 MG, SINGLE (13 TABLETS OF 7.5MG)
     Route: 048
     Dates: start: 20220816, end: 20220816
  5. CLOMIPRAMINE HYDROCHLORIDE [Suspect]
     Active Substance: CLOMIPRAMINE HYDROCHLORIDE
     Indication: Product used for unknown indication
     Dosage: 1500 MG, SINGLE (20 TABLTES OF 75MG)
     Route: 048
     Dates: start: 20220816, end: 20220816
  6. SERTRALINE HYDROCHLORIDE [Suspect]
     Active Substance: SERTRALINE HYDROCHLORIDE
     Indication: Product used for unknown indication
     Dosage: 150 MG, SINGLE (6 TABLETS OF 25MG)
     Route: 048
     Dates: start: 20220816, end: 20220816

REACTIONS (5)
  - Coma [Recovered/Resolved]
  - Bezoar [Recovered/Resolved]
  - Electrocardiogram QT prolonged [Recovered/Resolved]
  - Psychiatric symptom [Recovered/Resolved]
  - Overdose [Unknown]

NARRATIVE: CASE EVENT DATE: 20220816
